FAERS Safety Report 23396045 (Version 1)
Quarter: 2024Q1

REPORT INFORMATION
  Report Type: Spontaneous
  Country: SG (occurrence: SG)
  Receive Date: 20240112
  Receipt Date: 20240112
  Transmission Date: 20240410
  Serious: Yes (Other)
  Sender: FDA-Public Use
  Company Number: SG-STRIDES ARCOLAB LIMITED-2024SP000318

PATIENT
  Age: 70 Year
  Sex: Male

DRUGS (6)
  1. MYCOPHENOLATE MOFETIL [Suspect]
     Active Substance: MYCOPHENOLATE MOFETIL
     Indication: Renal transplant
     Dosage: 500 MILLIGRAM/DAILY (TRIPLE IMMUNOSUPPRESSION REGIMEN)
     Route: 065
     Dates: start: 2016
  2. MYCOPHENOLATE MOFETIL [Suspect]
     Active Substance: MYCOPHENOLATE MOFETIL
     Indication: Immunosuppressant drug therapy
  3. PREDNISOLONE [Suspect]
     Active Substance: PREDNISOLONE
     Indication: Renal transplant
     Dosage: 5 MILLIGRAM/DAILY (TRIPLE IMMUNOSUPPRESSION REGIMEN)
     Route: 065
     Dates: start: 2016
  4. PREDNISOLONE [Suspect]
     Active Substance: PREDNISOLONE
     Indication: Immunosuppressant drug therapy
  5. CYCLOSPORINE [Suspect]
     Active Substance: CYCLOSPORINE
     Indication: Renal transplant
     Dosage: 150 MILLIGRAM/DAILY (TRIPLE IMMUNOSUPPRESSION REGIMEN)
     Route: 065
     Dates: start: 2016
  6. CYCLOSPORINE [Suspect]
     Active Substance: CYCLOSPORINE
     Indication: Immunosuppressant drug therapy

REACTIONS (4)
  - Biliary tract disorder [Recovered/Resolved]
  - Cholangitis [Recovered/Resolved]
  - Bile duct stenosis [Recovered/Resolved]
  - Cytomegalovirus infection [Recovered/Resolved]

NARRATIVE: CASE EVENT DATE: 20191201
